FAERS Safety Report 5589433-8 (Version None)
Quarter: 2008Q1

REPORT INFORMATION
  Report Type: 
  Country: None (occurrence: None)
  Receive Date: 20080109
  Receipt Date: 20071220
  Transmission Date: 20080703
  Serious: Yes (Other)
  Sender: FDA-Public Use
  Company Number: SP01699

PATIENT
  Age: 45 Year
  Sex: Female

DRUGS (1)
  1. MOVIPREP [Suspect]
     Indication: COLONOSCOPY
     Dosage: 1 LIT (1 LIT, 1 IN 1 D), ORAL
     Route: 048

REACTIONS (2)
  - ATRIAL FIBRILLATION [None]
  - URTICARIA [None]
